FAERS Safety Report 10623518 (Version 4)
Quarter: 2015Q1

REPORT INFORMATION
  Report Type: Report from Study
  Country: FR (occurrence: FR)
  Receive Date: 20141203
  Receipt Date: 20150313
  Transmission Date: 20150720
  Serious: Yes (Death, Hospitalization, Other)
  Sender: FDA-Public Use
  Company Number: FR-009507513-1411FRA000253

PATIENT
  Age: 64 Year
  Sex: Male
  Weight: 74 kg

DRUGS (14)
  1. INEXIUM (ESOMEPRAZOLE MAGNESIUM) [Concomitant]
     Active Substance: ESOMEPRAZOLE MAGNESIUM
     Dosage: 20 MG (1 TABLET), QPM
  2. SKENAN [Concomitant]
     Active Substance: MORPHINE SULFATE
     Dosage: 10 MG, TWICE
  3. PEMBROLIZUMAB. [Suspect]
     Active Substance: PEMBROLIZUMAB
     Indication: METASTATIC MALIGNANT MELANOMA
     Dosage: 2 MG/KG, Q3W
     Route: 042
     Dates: start: 20140819, end: 20140819
  4. ALPRAZOLAM. [Concomitant]
     Active Substance: ALPRAZOLAM
     Dosage: 0.25 (0.5 TABLET) MORNING/NOON AND HALF A TABLET IN CASE OF ANXIETY ATTACK
  5. TIORFAN [Concomitant]
     Active Substance: RACECADOTRIL
     Dosage: 100 MG (1 CAPSULE) MORNING/NOON/EVENING/ IF DIARRHEA
  6. FLECAINE [Concomitant]
     Active Substance: FLECAINIDE
     Dosage: 1 CAPSULE (200 MG) PER DAY AT 08:00
  7. ARIXTRA [Concomitant]
     Active Substance: FONDAPARINUX SODIUM
     Dosage: 7.5 MG, Q24H
     Route: 058
  8. CORDARONE [Concomitant]
     Active Substance: AMIODARONE HYDROCHLORIDE
     Dosage: 200 MG (1 TABLET), QAM
     Dates: start: 20141004
  9. PEMBROLIZUMAB. [Suspect]
     Active Substance: PEMBROLIZUMAB
     Dosage: 2 MG/KG, Q3W
     Route: 042
     Dates: start: 20140910, end: 20140910
  10. CALCIDOSE [Concomitant]
     Active Substance: CALCIUM CARBONATE
     Dosage: 1 SACHET AT NOON
  11. IMOVANE [Concomitant]
     Active Substance: ZOPICLONE
     Dosage: 7.5 MG (1 TABLET) AT BEDTIME IN CASE OF INSOMNIA
  12. CORDARONE [Concomitant]
     Active Substance: AMIODARONE HYDROCHLORIDE
     Dosage: 400 MG (2 TABLETS), QAM
     Dates: end: 20141003
  13. DAFALGAN [Concomitant]
     Active Substance: ACETAMINOPHEN
     Dosage: 1 G (1 TABLET), Q6H
  14. ALPRAZOLAM. [Concomitant]
     Active Substance: ALPRAZOLAM
     Dosage: 0.5 MG (1 TABLET) ON EVENING

REACTIONS (6)
  - Hepatitis acute [Not Recovered/Not Resolved]
  - Anaemia [Unknown]
  - Cardiac arrest [Fatal]
  - Tumour lysis syndrome [Fatal]
  - Lymphopenia [Not Recovered/Not Resolved]
  - Lung disorder [Unknown]

NARRATIVE: CASE EVENT DATE: 20140910
